FAERS Safety Report 25214569 (Version 1)
Quarter: 2025Q2

REPORT INFORMATION
  Report Type: Other
  Country: RU (occurrence: RU)
  Receive Date: 20250418
  Receipt Date: 20250418
  Transmission Date: 20250717
  Serious: Yes (Hospitalization, Other)
  Sender: SERVIER
  Company Number: RU-SERVIER-S25004603

PATIENT

DRUGS (1)
  1. ONCASPAR [Suspect]
     Active Substance: PEGASPARGASE
     Indication: Product used for unknown indication
     Route: 042

REACTIONS (4)
  - Hemiparesis [Recovered/Resolved]
  - Somnolence [Recovered/Resolved]
  - Facial paresis [Recovered/Resolved]
  - Hypoaesthesia [Recovered/Resolved]
